FAERS Safety Report 14994188 (Version 1)
Quarter: 2018Q2

REPORT INFORMATION
  Report Type: Report from Study
  Country: IT (occurrence: IT)
  Receive Date: 20180611
  Receipt Date: 20180611
  Transmission Date: 20180711
  Serious: Yes (Hospitalization)
  Sender: FDA-Public Use
  Company Number: IT-TEVA-2018-IT-904243

PATIENT
  Age: 89 Year
  Sex: Female

DRUGS (6)
  1. INFLUENZA VIRUS VACCINE [Interacting]
     Active Substance: INFLUENZA VIRUS VACCINE
     Indication: IMMUNISATION
     Route: 065
  2. CARBAMAZEPINE. [Suspect]
     Active Substance: CARBAMAZEPINE
     Route: 065
  3. DILTIAZEM. [Interacting]
     Active Substance: DILTIAZEM
     Route: 065
  4. DIGOXIN. [Interacting]
     Active Substance: DIGOXIN
     Route: 065
  5. ISOSORBIDE. [Interacting]
     Active Substance: ISOSORBIDE
     Route: 065
  6. DIPYRIDAMOLE. [Interacting]
     Active Substance: DIPYRIDAMOLE
     Route: 065

REACTIONS (9)
  - Leukocytosis [Unknown]
  - Respiratory acidosis [Unknown]
  - Hypoxia [Unknown]
  - Stupor [Unknown]
  - Drug interaction [Unknown]
  - Encephalopathy [Unknown]
  - Pneumonia [Unknown]
  - Toxicity to various agents [Unknown]
  - Somnolence [Unknown]
